FAERS Safety Report 23243729 (Version 1)
Quarter: 2023Q4

REPORT INFORMATION
  Report Type: Spontaneous
  Country: US (occurrence: US)
  Receive Date: 20231130
  Receipt Date: 20231130
  Transmission Date: 20240109
  Serious: Yes (Hospitalization)
  Sender: FDA-Public Use
  Company Number: US-SA-SAC20230405001259

PATIENT
  Age: 50 Year
  Sex: Female

DRUGS (2)
  1. LANTUS SOLOSTAR [Suspect]
     Active Substance: INSULIN GLARGINE
     Dosage: UNK
     Route: 065
  2. RYBELSUS [Concomitant]
     Active Substance: SEMAGLUTIDE

REACTIONS (3)
  - Pain in extremity [Unknown]
  - Limb discomfort [Unknown]
  - Limb operation [Unknown]
